FAERS Safety Report 7379282-2 (Version None)
Quarter: 2011Q1

REPORT INFORMATION
  Report Type: 
  Country: None (occurrence: None)
  Receive Date: 20110328
  Receipt Date: 20101108
  Transmission Date: 20110831
  Serious: Yes (Hospitalization)
  Sender: FDA-Public Use
  Company Number: US-AMGEN-USANI2010003608

PATIENT
  Age: 56 Year
  Sex: Male

DRUGS (4)
  1. GLUCOPHAGE [Concomitant]
     Dosage: 500 MG, TID
     Route: 048
  2. LISINOPRIL [Concomitant]
     Dosage: 10 MG, QD
     Route: 048
  3. ACTOS [Concomitant]
     Dosage: 30 MG, QD
     Route: 048
  4. ETANERCEPT [Suspect]
     Indication: PSORIASIS
     Dosage: 50 MG, 2 TIMES/WK
     Dates: start: 20060720, end: 20080512

REACTIONS (2)
  - LEUKOCYTOSIS [None]
  - DIARRHOEA [None]
